FAERS Safety Report 12612595 (Version 1)
Quarter: 2016Q3

REPORT INFORMATION
  Report Type: Spontaneous
  Country: US (occurrence: US)
  Receive Date: 20160801
  Receipt Date: 20160801
  Transmission Date: 20161109
  Serious: No
  Sender: FDA-Public Use
  Company Number: US-ELI_LILLY_AND_COMPANY-US201607013153

PATIENT
  Sex: Female

DRUGS (4)
  1. ISOSORBIDE MONONITRATE. [Concomitant]
     Active Substance: ISOSORBIDE MONONITRATE
  2. GLUCOTROL [Concomitant]
     Active Substance: GLIPIZIDE
     Dosage: 1 UNK, UNK
  3. COREG [Concomitant]
     Active Substance: CARVEDILOL
  4. HUMULIN 70/30 [Suspect]
     Active Substance: INSULIN HUMAN
     Indication: TYPE 2 DIABETES MELLITUS
     Dosage: 15 U, BID
     Route: 065
     Dates: start: 201606

REACTIONS (1)
  - Visual impairment [Unknown]
